FAERS Safety Report 6850353-X (Version None)
Quarter: 2010Q3

REPORT INFORMATION
  Report Type: 
  Country: None (occurrence: None)
  Receive Date: 20100716
  Receipt Date: 20071018
  Transmission Date: 20110219
  Serious: No
  Sender: FDA-Public Use
  Company Number: US-PFIZER INC-2007088365

PATIENT
  Sex: Male

DRUGS (9)
  1. CHANTIX [Suspect]
     Indication: SMOKING CESSATION THERAPY
     Route: 048
     Dates: start: 20070901
  2. NEXIUM [Concomitant]
     Route: 048
  3. LIPITOR [Concomitant]
     Route: 048
  4. ZOLOFT [Concomitant]
     Route: 048
  5. XANAX [Concomitant]
     Route: 048
  6. ALLEGRA [Concomitant]
     Route: 048
  7. TIOTROPIUM BROMIDE [Concomitant]
     Route: 048
  8. UROXATRAL [Concomitant]
     Route: 048
  9. MOTRIN [Concomitant]
     Route: 048

REACTIONS (2)
  - ALCOHOL WITHDRAWAL SYNDROME [None]
  - NICOTINE DEPENDENCE [None]
